FAERS Safety Report 25273533 (Version 2)
Quarter: 2025Q2

REPORT INFORMATION
  Report Type: Spontaneous
  Country: US (occurrence: US)
  Receive Date: 20250506
  Receipt Date: 20250630
  Transmission Date: 20250716
  Serious: Yes (Death, Hospitalization, Other)
  Sender: HIKMA
  Company Number: US-HIKMA PHARMACEUTICALS USA INC.-US-H14001-25-03792

PATIENT
  Age: 19 Year
  Sex: Female

DRUGS (4)
  1. ATIVAN [Suspect]
     Active Substance: LORAZEPAM
     Indication: Product used for unknown indication
     Route: 065
     Dates: start: 20211013
  2. DEXMEDETOMIDINE [Suspect]
     Active Substance: DEXMEDETOMIDINE
     Indication: Product used for unknown indication
     Route: 065
  3. MIDAZOLAM [Suspect]
     Active Substance: MIDAZOLAM
     Indication: Product used for unknown indication
     Route: 065
  4. MORPHINE [Suspect]
     Active Substance: MORPHINE
     Indication: Product used for unknown indication
     Route: 065
     Dates: start: 20211013

REACTIONS (9)
  - Sedation complication [Unknown]
  - Peripheral coldness [Unknown]
  - Respiratory arrest [Unknown]
  - Hypoxia [Fatal]
  - Respiratory rate decreased [Unknown]
  - Acute respiratory failure [Fatal]
  - Body temperature decreased [Unknown]
  - Heart rate decreased [Unknown]
  - COVID-19 [Fatal]

NARRATIVE: CASE EVENT DATE: 20211001
